FAERS Safety Report 5054018-9 (Version None)
Quarter: 2006Q2

REPORT INFORMATION
  Report Type: 
  Country: None (occurrence: None)
  Receive Date: 20060616
  Receipt Date: 20050905
  Transmission Date: 20061013
  Serious: Yes (Hospitalization, Other)
  Sender: FDA-Public Use
  Company Number: 200516481US

PATIENT
  Age: 85 Year
  Sex: Female

DRUGS (7)
  1. LANTUS [Suspect]
     Indication: DIABETES MELLITUS NON-INSULIN-DEPENDENT
     Dosage: 14 U QD INJ
  2. NOVOLOG [Concomitant]
  3. ACETYLSALICYLIC ACID SRT [Concomitant]
  4. DIPYRIDAMOLE [Suspect]
  5. PHENYTOIN [Concomitant]
  6. DIURETIC [Concomitant]
  7. BLOOD PRESSURE MEDICATION [Concomitant]

REACTIONS (2)
  - HYPERGLYCAEMIA [None]
  - HYPOGLYCAEMIA [None]
